FAERS Safety Report 16648751 (Version 1)
Quarter: 2019Q3

REPORT INFORMATION
  Report Type: Spontaneous
  Country: FR (occurrence: FR)
  Receive Date: 20190730
  Receipt Date: 20190730
  Transmission Date: 20191004
  Serious: Yes (Other)
  Sender: FDA-Public Use
  Company Number: FR-TEVA-2019-FR-1085486

PATIENT
  Age: 78 Year
  Sex: Female

DRUGS (1)
  1. EFFENTORA 600 MICROGRAMMES, COMPRIM? GINGIVAL [Suspect]
     Active Substance: FENTANYL CITRATE
     Dosage: 2400 MILLIGRAM DAILY;
     Route: 065
     Dates: start: 201710

REACTIONS (1)
  - Drug dependence [Not Recovered/Not Resolved]

NARRATIVE: CASE EVENT DATE: 2018
